FAERS Safety Report 8404902-0 (Version None)
Quarter: 2012Q2

REPORT INFORMATION
  Report Type: 
  Country: None (occurrence: None)
  Receive Date: 20120601
  Receipt Date: 20111019
  Transmission Date: 20120825
  Serious: No
  Sender: FDA-Public Use
  Company Number: US-ASTRAZENECA-2011SE63840

PATIENT
  Sex: Female

DRUGS (21)
  1. ATACAND HCT [Suspect]
     Dosage: 32MG-12.5MG 1 TAB PO ONCE A DAY
     Route: 048
     Dates: start: 20070412
  2. PREMARIN [Concomitant]
  3. NITROFURANTOIN MACROCRYSTALLINE [Concomitant]
  4. NEXIUM [Suspect]
     Route: 048
     Dates: start: 20070412
  5. MULTIVITAMIN MULTIPLE VITAMINS [Concomitant]
  6. HYDROXYZINE HYDROCHLORIDE [Concomitant]
  7. HYDROCORTISONE VALERATE [Concomitant]
  8. CLOBETASOL TOPICAL [Concomitant]
  9. SYSTANE PRESERVED [Concomitant]
  10. PHENAZOPYRIDINE HCL TAB [Concomitant]
  11. LOTREL [Concomitant]
  12. ASPIRIN [Concomitant]
  13. SINGULAIR [Concomitant]
  14. GAS-X [Concomitant]
  15. DESONIDE [Concomitant]
  16. PREMARIN [Concomitant]
  17. ZETIA [Concomitant]
  18. LESCOL [Concomitant]
  19. KLOR-CON [Concomitant]
  20. ALEVE SODIUM [Concomitant]
  21. CLINDAMYCIN [Concomitant]

REACTIONS (2)
  - HIGH DENSITY LIPOPROTEIN INCREASED [None]
  - BLOOD CREATININE DECREASED [None]
